FAERS Safety Report 7548776-9 (Version None)
Quarter: 2011Q2

REPORT INFORMATION
  Report Type: 
  Country: None (occurrence: None)
  Receive Date: 20110608
  Receipt Date: 20110525
  Transmission Date: 20111010
  Serious: Yes (Death)
  Sender: FDA-Public Use
  Company Number: 2011-242

PATIENT
  Age: 77 Year
  Sex: Female

DRUGS (6)
  1. ARICEPT [Concomitant]
  2. NORVASC [Concomitant]
  3. POTASSIUM (POTASSIUM) [Concomitant]
  4. FAZACLO ODT [Suspect]
     Indication: DEMENTIA ALZHEIMER'S TYPE
     Dosage: 37.5 MG, QD, ORAL
     Route: 048
     Dates: start: 20091109, end: 20110319
  5. MEGACE [Concomitant]
  6. FERROUS SULFATE TAB [Concomitant]

REACTIONS (1)
  - GENERAL PHYSICAL HEALTH DETERIORATION [None]
